FAERS Safety Report 4883215-8 (Version None)
Quarter: 2006Q1

REPORT INFORMATION
  Report Type: 
  Country: None (occurrence: None)
  Receive Date: 20060117
  Receipt Date: 20060117
  Transmission Date: 20060701
  Serious: Yes (Other)
  Sender: FDA-Public Use
  Company Number: None

PATIENT
  Age: 57 Year
  Sex: Male
  Weight: 100 kg

DRUGS (3)
  1. LEVOFLOXACIN [Suspect]
     Indication: WOUND
     Dosage: 500MG ONCE IV BOLUS
     Route: 040
     Dates: start: 20060114, end: 20060114
  2. IBUPROFEN [Concomitant]
  3. DARVON [Concomitant]

REACTIONS (7)
  - COUGH [None]
  - FEELING ABNORMAL [None]
  - HYPERHIDROSIS [None]
  - NAUSEA [None]
  - RETCHING [None]
  - URTICARIA [None]
  - WOUND COMPLICATION [None]
